FAERS Safety Report 9771251 (Version 1)
Quarter: 2013Q4

REPORT INFORMATION
  Report Type: Spontaneous
  Country: GR (occurrence: GR)
  Receive Date: 20131218
  Receipt Date: 20131218
  Transmission Date: 20140711
  Serious: Yes (Death, Hospitalization)
  Sender: FDA-Public Use
  Company Number: GR-PFIZER INC-2013361975

PATIENT
  Age: 46 Year
  Sex: Female

DRUGS (4)
  1. METHYLPREDNISOLONE [Suspect]
     Indication: MYASTHENIA GRAVIS
     Dosage: UNK
  2. METHYLPREDNISOLONE [Suspect]
     Indication: THYMOMA
  3. PYRIDOSTIGMINE [Suspect]
     Indication: MYASTHENIA GRAVIS
     Dosage: UNK
  4. PYRIDOSTIGMINE [Suspect]
     Indication: THYMOMA

REACTIONS (4)
  - Pure white cell aplasia [Fatal]
  - Bacterial sepsis [Fatal]
  - Acute respiratory failure [Fatal]
  - Multi-organ failure [Fatal]
